FAERS Safety Report 10305811 (Version 1)
Quarter: 2014Q3

REPORT INFORMATION
  Report Type: Spontaneous
  Country: US (occurrence: None)
  Receive Date: 20140710
  Receipt Date: 20140710
  Transmission Date: 20150326
  Serious: Yes (Other)
  Sender: FDA-Public Use
  Company Number: 2014-US-004746

PATIENT
  Age: 49 Year
  Sex: Female

DRUGS (1)
  1. XYREM [Suspect]
     Active Substance: SODIUM OXYBATE
     Indication: NARCOLEPSY
     Route: 048
     Dates: start: 201403, end: 201404

REACTIONS (5)
  - Anxiety [None]
  - Hypertension [None]
  - Convulsion [None]
  - Abnormal behaviour [None]
  - Delirium [None]

NARRATIVE: CASE EVENT DATE: 20140412
